FAERS Safety Report 20131718 (Version 2)
Quarter: 2022Q2

REPORT INFORMATION
  Report Type: Spontaneous
  Country: FR (occurrence: FR)
  Receive Date: 20211130
  Receipt Date: 20220609
  Transmission Date: 20220720
  Serious: Yes (Other)
  Sender: FDA-Public Use
  Company Number: None

PATIENT
  Age: 73 Year
  Sex: Male

DRUGS (2)
  1. AZACITIDINE [Suspect]
     Active Substance: AZACITIDINE
     Indication: Neoplasm malignant
     Dosage: UNK
  2. HYDREA [Suspect]
     Active Substance: HYDROXYUREA
     Indication: Neoplasm malignant
     Dosage: UNK
     Dates: start: 20210330

REACTIONS (1)
  - Osteonecrosis of jaw [Not Recovered/Not Resolved]
